FAERS Safety Report 15452807 (Version 1)
Quarter: 2018Q4

REPORT INFORMATION
  Report Type: Other
  Country: US (occurrence: US)
  Receive Date: 20181001
  Receipt Date: 20181001
  Transmission Date: 20190204
  Serious: No
  Sender: FDA-Public Use
  Company Number: US-MAYNE PHARMA-2018MYN001391

PATIENT

DRUGS (1)
  1. DOFETILIDE. [Suspect]
     Active Substance: DOFETILIDE
     Indication: ATRIAL FIBRILLATION
     Dosage: UNK
     Dates: start: 201803

REACTIONS (2)
  - Atrial flutter [Not Recovered/Not Resolved]
  - Product substitution issue [Unknown]

NARRATIVE: CASE EVENT DATE: 2018
